FAERS Safety Report 9881633 (Version 2)
Quarter: 2014Q2

REPORT INFORMATION
  Report Type: Spontaneous
  Country: US (occurrence: None)
  Receive Date: 20140205
  Receipt Date: 20140408
  Transmission Date: 20141212
  Serious: Yes (Hospitalization, Other)
  Sender: FDA-Public Use
  Company Number: OPCR20140040

PATIENT
  Age: 51 Year
  Sex: Female

DRUGS (1)
  1. OPANA ER [Suspect]
     Indication: DRUG ABUSE
     Route: 042

REACTIONS (5)
  - Microangiopathic haemolytic anaemia [None]
  - Hepatitis C [None]
  - Hypertensive crisis [None]
  - Cardiac failure acute [None]
  - Acute coronary syndrome [None]
